FAERS Safety Report 10510392 (Version 1)
Quarter: 2014Q4

REPORT INFORMATION
  Report Type: Spontaneous
  Country: US (occurrence: None)
  Receive Date: 20141009
  Receipt Date: 20141009
  Transmission Date: 20150528
  Serious: Yes (Other)
  Sender: FDA-Public Use
  Company Number: None

PATIENT
  Age: 34 Year
  Sex: Male
  Weight: 78.47 kg

DRUGS (2)
  1. FETZIMA [Suspect]
     Active Substance: LEVOMILNACIPRAN HYDROCHLORIDE
     Indication: DEPRESSION
     Dosage: 40 MG/1 DAILY ONCE DAILY TAKEN BY MOUTH
     Route: 048
     Dates: start: 20140301, end: 20140901
  2. FETZIMA [Suspect]
     Active Substance: LEVOMILNACIPRAN HYDROCHLORIDE
     Indication: ANXIETY
     Dosage: 40 MG/1 DAILY ONCE DAILY TAKEN BY MOUTH
     Route: 048
     Dates: start: 20140301, end: 20140901

REACTIONS (2)
  - Stress [None]
  - Heart rate increased [None]

NARRATIVE: CASE EVENT DATE: 20140901
